FAERS Safety Report 5713241-8 (Version None)
Quarter: 2008Q2

REPORT INFORMATION
  Report Type: 
  Country: None (occurrence: None)
  Receive Date: 20080422
  Receipt Date: 20080410
  Transmission Date: 20081010
  Serious: Yes (Other)
  Sender: FDA-Public Use
  Company Number: PFIZER INC-2008032777

PATIENT
  Sex: Male

DRUGS (3)
  1. CHANTIX [Suspect]
     Indication: SMOKING CESSATION THERAPY
  2. ADVAIR HFA [Concomitant]
  3. PROZAC [Concomitant]

REACTIONS (2)
  - DIZZINESS [None]
  - FALL [None]
